FAERS Safety Report 10553827 (Version 1)
Quarter: 2014Q4

REPORT INFORMATION
  Report Type: Spontaneous
  Country: US (occurrence: None)
  Receive Date: 20141023
  Receipt Date: 20141023
  Transmission Date: 20150529
  Serious: No
  Sender: FDA-Public Use
  Company Number: AP356-01062-SPO-US

PATIENT
  Age: 69 Year
  Sex: Female
  Weight: 112 kg

DRUGS (4)
  1. LISINOPRIL (LISINOPRIL) [Concomitant]
     Active Substance: LISINOPRIL
  2. BELVIQ [Suspect]
     Active Substance: LORCASERIN HYDROCHLORIDE
     Indication: WEIGHT DECREASED
     Route: 048
     Dates: start: 20140711, end: 20140711
  3. ATENOLOL (ATENOLOL) [Concomitant]
     Active Substance: ATENOLOL
  4. YACON ROOT (HERBAL) [Concomitant]

REACTIONS (3)
  - Pollakiuria [None]
  - Intentional underdose [None]
  - Palpitations [None]

NARRATIVE: CASE EVENT DATE: 20140711
